FAERS Safety Report 9029863 (Version 1)
Quarter: 2013Q1

REPORT INFORMATION
  Report Type: Spontaneous
  Country: US (occurrence: US)
  Receive Date: 20130124
  Receipt Date: 20130124
  Transmission Date: 20140127
  Serious: Yes (Life-Threatening, Hospitalization)
  Sender: FDA-Public Use
  Company Number: US-ROXANE LABORATORIES, INC.-2013-RO-00114RO

PATIENT
  Age: 22 Year
  Sex: Male

DRUGS (6)
  1. METHADONE [Suspect]
     Indication: DRUG DEPENDENCE
     Dosage: 350 MG
  2. XANAX [Suspect]
     Dosage: 27 MG
  3. ZOLOFT [Suspect]
     Indication: ANXIETY
  4. ZOLOFT [Suspect]
     Indication: DEPRESSION
  5. KLONOPIN [Suspect]
  6. ATIVAN [Suspect]

REACTIONS (2)
  - Encephalopathy [Recovered/Resolved]
  - Toxicity to various agents [Recovered/Resolved]
